FAERS Safety Report 9080268 (Version 1)
Quarter: 2013Q1

REPORT INFORMATION
  Report Type: Spontaneous
  Country: IT (occurrence: IT)
  Receive Date: 20130218
  Receipt Date: 20130218
  Transmission Date: 20140127
  Serious: Yes (Hospitalization)
  Sender: FDA-Public Use
  Company Number: PHHY2013IT014540

PATIENT
  Sex: Male

DRUGS (5)
  1. METOPROLOL [Suspect]
     Indication: ATRIAL FIBRILLATION
     Dosage: 1 DF, DAILY
     Route: 048
     Dates: start: 20130123, end: 20130124
  2. DELORAZEPAM [Concomitant]
     Dosage: 15 DF
  3. COUMADIN [Concomitant]
  4. LANOXIN [Concomitant]
     Dosage: 0.125 MG
  5. LASIX [Concomitant]
     Dosage: 2 DF

REACTIONS (2)
  - Angioedema [Recovering/Resolving]
  - Lip oedema [Recovering/Resolving]
